FAERS Safety Report 20482186 (Version 4)
Quarter: 2022Q3

REPORT INFORMATION
  Report Type: Report from Study
  Country: CO (occurrence: US)
  Receive Date: 20220216
  Receipt Date: 20220901
  Transmission Date: 20221026
  Serious: Yes (Other)
  Sender: FDA-Public Use
  Company Number: CO-ABBVIE-20K-036-3274140-00

PATIENT
  Age: 57 Year
  Sex: Male
  Weight: 77 kg

DRUGS (10)
  1. HUMIRA [Suspect]
     Active Substance: ADALIMUMAB
     Indication: Psoriasis
     Route: 058
     Dates: start: 20100709
  2. HUMIRA [Suspect]
     Active Substance: ADALIMUMAB
     Indication: Psoriasis
     Route: 058
     Dates: end: 20191015
  3. HUMIRA [Suspect]
     Active Substance: ADALIMUMAB
     Indication: Psoriasis
     Route: 058
     Dates: end: 20200715
  4. HUMIRA [Suspect]
     Active Substance: ADALIMUMAB
     Route: 058
     Dates: end: 20210901
  5. HUMIRA [Suspect]
     Active Substance: ADALIMUMAB
     Route: 058
     Dates: start: 2021, end: 20211106
  6. HUMIRA [Suspect]
     Active Substance: ADALIMUMAB
     Route: 058
     Dates: end: 20211106
  7. HUMIRA [Suspect]
     Active Substance: ADALIMUMAB
     Route: 058
     Dates: end: 20220615
  8. METHOTREXATE [Suspect]
     Active Substance: METHOTREXATE
     Indication: Psoriasis
     Dosage: FREQUENCY-ALL SATURDAYS
     Route: 048
     Dates: start: 202208
  9. DIABOG [Concomitant]
     Indication: Product used for unknown indication
  10. DAIVOBET [Concomitant]
     Active Substance: BETAMETHASONE DIPROPIONATE\CALCIPOTRIENE
     Indication: Skin lesion

REACTIONS (27)
  - Visual impairment [Not Recovered/Not Resolved]
  - Cataract [Not Recovered/Not Resolved]
  - Dizziness [Unknown]
  - Weight increased [Recovering/Resolving]
  - Immunodeficiency [Not Recovered/Not Resolved]
  - Limb deformity [Unknown]
  - Malaise [Recovering/Resolving]
  - Skin injury [Recovering/Resolving]
  - Malaise [Unknown]
  - Product administration error [Not Recovered/Not Resolved]
  - General physical health deterioration [Unknown]
  - Asthenia [Recovered/Resolved]
  - Gait disturbance [Not Recovered/Not Resolved]
  - Chills [Recovered/Resolved]
  - Feeling of despair [Not Recovered/Not Resolved]
  - Discouragement [Not Recovered/Not Resolved]
  - Self-consciousness [Not Recovered/Not Resolved]
  - Emotional distress [Unknown]
  - Musculoskeletal stiffness [Not Recovered/Not Resolved]
  - Inflammation [Recovering/Resolving]
  - Psoriasis [Recovering/Resolving]
  - Bone pain [Recovered/Resolved]
  - Peripheral swelling [Recovering/Resolving]
  - Therapeutic product effect decreased [Recovered/Resolved]
  - Arthralgia [Not Recovered/Not Resolved]
  - Pain [Recovered/Resolved]
  - Therapeutic product effect incomplete [Unknown]

NARRATIVE: CASE EVENT DATE: 20191201
